FAERS Safety Report 19567364 (Version 1)
Quarter: 2021Q3

REPORT INFORMATION
  Report Type: Other
  Country: CN (occurrence: CN)
  Receive Date: 20210716
  Receipt Date: 20210716
  Transmission Date: 20211014
  Serious: Yes (Other)
  Sender: FDA-Public Use
  Company Number: CN-ROCHE-2871993

PATIENT

DRUGS (4)
  1. BEVACIZUMAB. [Suspect]
     Active Substance: BEVACIZUMAB
     Indication: COLORECTAL CANCER
     Dosage: ONCE EVERY 2 WEEKS AS A TREATMENT CYCLE FOR 3 CONSECUTIVE CYCLES. INJECTION, 100 MG PER BOTTEL:4ML
     Route: 041
  2. IRINOTECAN HYDROCHLORIDE INJECTION [Suspect]
     Active Substance: IRINOTECAN HYDROCHLORIDE
     Indication: COLORECTAL CANCER
     Dosage: ONCE EVERY 2 WEEKS AS A TREATMENT CYCLE FOR 3 CONSECUTIVE CYCLES.
     Route: 041
  3. FLUOROURACIL. [Suspect]
     Active Substance: FLUOROURACIL
     Indication: COLORECTAL CANCER
     Dosage: ONCE EVERY 2 WEEKS AS A TREATMENT CYCLE FOR 3 CONSECUTIVE CYCLES.
     Route: 041
  4. CALCIUM FOLINATE [Suspect]
     Active Substance: LEUCOVORIN CALCIUM
     Indication: COLORECTAL CANCER
     Dosage: ONCE EVERY 2 WEEKS AS A TREATMENT CYCLE FOR 3 CONSECUTIVE CYCLES.
     Route: 041

REACTIONS (1)
  - Myelosuppression [Unknown]
